FAERS Safety Report 7692814-X (Version None)
Quarter: 2011Q3

REPORT INFORMATION
  Report Type: 
  Country: None (occurrence: None)
  Receive Date: 20110819
  Receipt Date: 20110815
  Transmission Date: 20111222
  Serious: Yes (Death, Other)
  Sender: FDA-Public Use
  Company Number: US-ELI_LILLY_AND_COMPANY-US200910005599

PATIENT
  Sex: Male

DRUGS (7)
  1. BYETTA [Suspect]
     Dosage: UNK, UNKNOWN
     Route: 065
     Dates: start: 20010101, end: 20050101
  2. LANTUS [Concomitant]
  3. FLOMAX [Concomitant]
  4. TOPROL-XL [Concomitant]
  5. HUMALOG [Concomitant]
  6. AVODART [Concomitant]
  7. ACTOS [Concomitant]

REACTIONS (3)
  - PANCREATITIS ACUTE [None]
  - PANCREATIC CARCINOMA [None]
  - OFF LABEL USE [None]
